FAERS Safety Report 7144041-2 (Version None)
Quarter: 2010Q4

REPORT INFORMATION
  Report Type: 
  Country: None (occurrence: None)
  Receive Date: 20101208
  Receipt Date: 20091109
  Transmission Date: 20110411
  Serious: No
  Sender: FDA-Public Use
  Company Number: 2009BI037168

PATIENT
  Age: 61 Year
  Sex: Female

DRUGS (1)
  1. TYSABRI [Suspect]
     Indication: MULTIPLE SCLEROSIS
     Route: 042
     Dates: start: 20090224

REACTIONS (5)
  - CATHETER PLACEMENT [None]
  - FATIGUE [None]
  - INFUSION SITE DISCOMFORT [None]
  - MUSCLE SPASMS [None]
  - VISION BLURRED [None]
